FAERS Safety Report 25606347 (Version 3)
Quarter: 2025Q4

REPORT INFORMATION
  Report Type: Spontaneous
  Country: US (occurrence: US)
  Receive Date: 20250725
  Receipt Date: 20251031
  Transmission Date: 20260117
  Serious: Yes (Hospitalization, Other)
  Sender: TEVA
  Company Number: US-TEVA-VS-3353384

PATIENT
  Age: 39 Year
  Sex: Male

DRUGS (6)
  1. UZEDY [Suspect]
     Active Substance: RISPERIDONE
     Indication: Schizophrenia
     Dosage: 250/0.7MG/ML
     Route: 065
     Dates: start: 202409, end: 20250716
  2. UZEDY [Suspect]
     Active Substance: RISPERIDONE
     Route: 065
     Dates: start: 20250101, end: 20250714
  3. SENNA [Concomitant]
     Active Substance: SENNOSIDES
     Indication: Product used for unknown indication
  4. NALTREXONE [Concomitant]
     Active Substance: NALTREXONE
     Indication: Product used for unknown indication
  5. GUANFACINE [Concomitant]
     Active Substance: GUANFACINE
     Indication: Product used for unknown indication
  6. ESCITALOPRAM [Concomitant]
     Active Substance: ESCITALOPRAM OXALATE
     Indication: Product used for unknown indication

REACTIONS (6)
  - Injection site necrosis [Unknown]
  - Localised infection [Unknown]
  - Injection site discolouration [Unknown]
  - Abscess [Unknown]
  - Injection site reaction [Unknown]
  - Injection site nodule [Unknown]

NARRATIVE: CASE EVENT DATE: 20250101
